FAERS Safety Report 5189018-1 (Version None)
Quarter: 2006Q4

REPORT INFORMATION
  Report Type: 
  Country: None (occurrence: None)
  Receive Date: 20061215
  Receipt Date: 20061204
  Transmission Date: 20070319
  Serious: Yes (Hospitalization, Other)
  Sender: FDA-Public Use
  Company Number: 2006151336

PATIENT
  Sex: Male

DRUGS (2)
  1. CELEBREX [Suspect]
     Dates: start: 20010914, end: 20030101
  2. VIOXX [Suspect]
     Dates: start: 20010906

REACTIONS (2)
  - BLINDNESS UNILATERAL [None]
  - CEREBROVASCULAR ACCIDENT [None]
